FAERS Safety Report 8805678 (Version 1)
Quarter: 2012Q4

REPORT INFORMATION
  Report Type: Spontaneous
  Country: AU (occurrence: None)
  Receive Date: 20120917
  Receipt Date: 20120917
  Transmission Date: 20130627
  Serious: Yes (Other)
  Sender: FDA-Public Use
  Company Number: 2012P1056726

PATIENT
  Age: 30 Year
  Sex: Male
  Weight: 68 kg

DRUGS (5)
  1. FLUOXETINE [Suspect]
     Indication: DEPRESSION
     Dates: start: 20111205, end: 20120430
  2. TRITTICO (TRAZODONE HYDROCHLORIDE) [Concomitant]
  3. THROMBO ASS (ACETYLSALICYLIC ACID) [Concomitant]
  4. NOMEXOR (NEBIVOLOL HYDROCHLORIDE) [Concomitant]
  5. TEMESTA (LORAZEPAM) [Concomitant]

REACTIONS (1)
  - Oral candidiasis [None]
